FAERS Safety Report 24179939 (Version 2)
Quarter: 2024Q3

REPORT INFORMATION
  Report Type: Spontaneous
  Country: US (occurrence: US)
  Receive Date: 20240806
  Receipt Date: 20240828
  Transmission Date: 20241016
  Serious: Yes (Hospitalization, Other)
  Sender: MERCK
  Company Number: US-009507513-2406USA007448

PATIENT
  Sex: Female

DRUGS (15)
  1. KEYTRUDA [Suspect]
     Active Substance: PEMBROLIZUMAB
     Indication: Endometrial cancer
     Dosage: 200 MILLIGRAM, Q3W
     Dates: start: 20240308, end: 20240531
  2. CARBOPLATIN [Suspect]
     Active Substance: CARBOPLATIN
     Indication: Endometrial cancer
     Dosage: 470 MILLIGRAM
     Dates: start: 20240308, end: 20240601
  3. TAXOL [Suspect]
     Active Substance: PACLITAXEL
     Indication: Endometrial cancer
     Dosage: 175 MILLIGRAM/SQ. METER
     Dates: start: 20240308, end: 20240601
  4. TYLENOL [Concomitant]
     Active Substance: ACETAMINOPHEN
     Indication: Pain
     Dosage: 2 TABLETS (650 MG) EVERY 4 HOURS
     Route: 048
  5. LIPITOR [Concomitant]
     Active Substance: ATORVASTATIN CALCIUM
     Dosage: 10 MILLIGRAM, QD
     Route: 048
  6. VITAMIN D3 [Concomitant]
     Active Substance: CHOLECALCIFEROL
     Indication: Vitamin D decreased
     Dosage: 50 MICROGRAM, QD
     Route: 048
  7. LOTRIMIN (CLOTRIMAZOLE) [Concomitant]
     Active Substance: CLOTRIMAZOLE
     Dosage: UNK UNK, BID
     Route: 061
  8. EMLA [Concomitant]
     Active Substance: LIDOCAINE\PRILOCAINE
     Indication: Pain
     Dosage: UNK, PRN
     Route: 061
  9. ZYPREXA [Concomitant]
     Active Substance: OLANZAPINE
     Dosage: 5 MILLIGRAM, QD
     Route: 048
     Dates: end: 20240812
  10. OMEGA-3 FATTY ACIDS [Concomitant]
     Active Substance: OMEGA-3 FATTY ACIDS
     Dosage: 2 CAPSULES, QD
     Route: 048
  11. PRILOSEC [Concomitant]
     Active Substance: OMEPRAZOLE MAGNESIUM
     Dosage: 40 MILLIGRAM, QD
     Route: 048
  12. ZOFRAN [Concomitant]
     Active Substance: ONDANSETRON HYDROCHLORIDE
     Indication: Nausea
     Dosage: 8 MILLIGRAM, TID
     Route: 048
  13. ZOFRAN [Concomitant]
     Active Substance: ONDANSETRON HYDROCHLORIDE
     Indication: Vomiting
  14. ZOCOR [Concomitant]
     Active Substance: SIMVASTATIN
     Dosage: 40 MILLIGRAM, QD
     Route: 048
  15. NORVASC [Concomitant]
     Active Substance: AMLODIPINE BESYLATE
     Dosage: 2.5 MILLIGRAM, QD
     Route: 048

REACTIONS (41)
  - Arteriosclerosis coronary artery [Unknown]
  - Cataract [Unknown]
  - Renal tubular necrosis [Unknown]
  - End stage renal disease [Unknown]
  - Polyneuropathy idiopathic progressive [Unknown]
  - Acute kidney injury [Recovering/Resolving]
  - Hyperlipidaemia [Unknown]
  - Osteopenia [Unknown]
  - Carpal tunnel syndrome [Unknown]
  - Gastrooesophageal reflux disease [Unknown]
  - Essential hypertension [Unknown]
  - Meniscus injury [Unknown]
  - Obesity [Unknown]
  - Obstructive sleep apnoea syndrome [Unknown]
  - Osteoarthritis [Unknown]
  - Posterior tibial tendon dysfunction [Unknown]
  - Glucose tolerance impaired [Unknown]
  - Colorectal adenoma [Unknown]
  - Varicose vein [Unknown]
  - Peripheral venous disease [Unknown]
  - Vitamin D deficiency [Unknown]
  - Lacrimation decreased [Unknown]
  - Type IIa hyperlipidaemia [Unknown]
  - Poor dental condition [Unknown]
  - Haematocrit abnormal [Unknown]
  - Arteriosclerosis [Unknown]
  - Electrolyte imbalance [Unknown]
  - Cardiac disorder [Unknown]
  - Metabolic acidosis [Unknown]
  - Ill-defined disorder [Unknown]
  - Haemoglobin abnormal [Unknown]
  - Liver disorder [Unknown]
  - Dehydration [Unknown]
  - Paraesthesia [Unknown]
  - Arthralgia [Unknown]
  - Rash [Unknown]
  - Dyspepsia [Unknown]
  - Fatigue [Unknown]
  - Nausea [Unknown]
  - Myalgia [Unknown]
  - Vomiting [Unknown]

NARRATIVE: CASE EVENT DATE: 20240101
